FAERS Safety Report 11034083 (Version 2)
Quarter: 2015Q2

REPORT INFORMATION
  Report Type: Spontaneous
  Country: US (occurrence: US)
  Receive Date: 20150415
  Receipt Date: 20150525
  Transmission Date: 20150821
  Serious: Yes (Other)
  Sender: FDA-Public Use
  Company Number: US-JNJFOC-20130302199

PATIENT
  Age: 73 Year
  Sex: Female

DRUGS (2)
  1. MULTAQ [Concomitant]
     Active Substance: DRONEDARONE
     Indication: HEART RATE IRREGULAR
     Route: 048
     Dates: start: 201202
  2. XARELTO [Suspect]
     Active Substance: RIVAROXABAN
     Indication: HEART RATE IRREGULAR
     Route: 048
     Dates: start: 201302, end: 20130212

REACTIONS (1)
  - Haematuria [Recovered/Resolved]

NARRATIVE: CASE EVENT DATE: 20130212
